FAERS Safety Report 15647740 (Version 2)
Quarter: 2019Q2

REPORT INFORMATION
  Report Type: Spontaneous
  Country: NO (occurrence: NO)
  Receive Date: 20181122
  Receipt Date: 20190522
  Transmission Date: 20190711
  Serious: Yes (Death, Other)
  Sender: FDA-Public Use
  Company Number: NO-ROCHE-2217308

PATIENT
  Age: 42 Year
  Sex: Male

DRUGS (1)
  1. TECENTRIQ [Suspect]
     Active Substance: ATEZOLIZUMAB
     Indication: NON-SMALL CELL LUNG CANCER METASTATIC
     Dosage: ONLY ADMINISTERED 3 TIMES BEFORE IT WAS PAUSED DUE TO THE PATIENTS COMPLICATIONS.
     Route: 042
     Dates: start: 20180807, end: 20180918

REACTIONS (3)
  - Myocarditis [Fatal]
  - Cardiac failure [Fatal]
  - Hypothyroidism [Fatal]

NARRATIVE: CASE EVENT DATE: 20180920
